FAERS Safety Report 23441422 (Version 1)
Quarter: 2024Q1

REPORT INFORMATION
  Report Type: Report from Study
  Country: NL (occurrence: NL)
  Receive Date: 20240125
  Receipt Date: 20240125
  Transmission Date: 20240410
  Serious: Yes (Death)
  Sender: FDA-Public Use
  Company Number: NL-ABBVIE-5605316

PATIENT
  Age: 84 Year
  Sex: Male

DRUGS (5)
  1. CARBIDOPA\LEVODOPA [Suspect]
     Active Substance: CARBIDOPA\LEVODOPA
     Indication: Parkinson^s disease
     Dosage: DURATION TEXT: REMAINS AT 16 HOURS.
     Route: 050
     Dates: start: 20200716
  2. CARBIDOPA\LEVODOPA [Suspect]
     Active Substance: CARBIDOPA\LEVODOPA
     Dosage: MD:12.0ML; CD:3.3ML/H; ED:4.0ML;?DURATION TEXT: REMAINS AT 16 HOURS.
     Route: 050
     Dates: start: 20231122, end: 20240108
  3. CARBIDOPA\LEVODOPA [Suspect]
     Active Substance: CARBIDOPA\LEVODOPA
     Dosage: MD:12.0ML; CD:3.0ML/H; ED:4.0ML;?DURATION TEXT: REMAINS AT 16 HOURS.
     Route: 050
     Dates: start: 20240109
  4. CARBIDOPA\LEVODOPA [Suspect]
     Active Substance: CARBIDOPA\LEVODOPA
     Dosage: MD:12.0ML; CD:3.5ML/H; ED:4.0ML;?DURATION TEXT: REMAINS AT 16 HOURS.
     Route: 050
     Dates: start: 20231011, end: 20231121
  5. BENSERAZIDE HYDROCHLORIDE\LEVODOPA [Concomitant]
     Active Substance: BENSERAZIDE HYDROCHLORIDE\LEVODOPA
     Indication: Parkinson^s disease
     Dosage: DISPER

REACTIONS (1)
  - Death [Fatal]

NARRATIVE: CASE EVENT DATE: 20240101
